FAERS Safety Report 8711704 (Version 2)
Quarter: 2015Q3

REPORT INFORMATION
  Report Type: Report from Study
  Country: AU (occurrence: AU)
  Receive Date: 20120807
  Receipt Date: 20150926
  Transmission Date: 20151125
  Serious: Yes (Hospitalization, Other)
  Sender: FDA-Public Use
  Company Number: PHHY2012AU009826

PATIENT
  Age: 51 Year
  Sex: Male

DRUGS (6)
  1. VENLAFAXINE [Concomitant]
     Active Substance: VENLAFAXINE HYDROCHLORIDE
     Indication: DEPRESSION
     Dosage: 375  MG, QD AT NIGHT
     Route: 048
  2. CLOZARIL [Suspect]
     Active Substance: CLOZAPINE
     Indication: SCHIZOPHRENIA
     Dosage: 150 MG, UNK
     Route: 048
     Dates: start: 20120116, end: 20120131
  3. DIAZEPAM. [Concomitant]
     Active Substance: DIAZEPAM
     Indication: PRODUCT USED FOR UNKNOWN INDICATION
     Dosage: 10 MG, AT NIGHT
     Route: 048
     Dates: start: 20120203, end: 20120228
  4. PALIPERIDONE [Concomitant]
     Active Substance: PALIPERIDONE
     Indication: SCHIZOPHRENIA
     Dosage: 100 MG, ONCE EVERY FOUR WEEK
     Route: 065
     Dates: start: 20111128
  5. METFORMIN [Concomitant]
     Active Substance: METFORMIN HYDROCHLORIDE
     Indication: TYPE 2 DIABETES MELLITUS
     Dosage: 500 MG, AT NIGHT
     Route: 048
  6. BENZTROPEINE [Concomitant]
     Active Substance: TROPINE BENZYLATE
     Indication: PRODUCT USED FOR UNKNOWN INDICATION
     Dosage: 1 MG, AT MORNING
     Route: 048
     Dates: start: 20120203

REACTIONS (11)
  - Dyspnoea [Unknown]
  - Antipsychotic drug level above therapeutic [Unknown]
  - Tachycardia [Unknown]
  - Oedema peripheral [Unknown]
  - Diastolic dysfunction [Unknown]
  - Myocarditis [Recovered/Resolved]
  - Body temperature increased [Unknown]
  - Ventricular hypokinesia [Unknown]
  - Ventricular hypertrophy [Unknown]
  - Abdominal discomfort [Unknown]
  - Hypotension [Unknown]

NARRATIVE: CASE EVENT DATE: 20120131
